FAERS Safety Report 8340533 (Version 5)
Quarter: 2012Q4

REPORT INFORMATION
  Report Type: Report from Study
  Country: BR (occurrence: BR)
  Receive Date: 20120117
  Receipt Date: 20120913
  Transmission Date: 20130627
  Serious: Yes (Hospitalization, Other)
  Sender: FDA-Public Use
  Company Number: BR-ROCHE-1029721

PATIENT
  Age: 21 Year
  Sex: Female
  Weight: 59 kg

DRUGS (16)
  1. MABTHERA [Suspect]
     Indication: SYSTEMIC LUPUS ERYTHEMATOSUS
     Route: 042
     Dates: start: 20100916, end: 20120217
  2. OMEPRAZOLE [Concomitant]
     Route: 065
  3. PREDNISONE [Concomitant]
     Route: 065
  4. TANDRILAX [Concomitant]
     Route: 065
  5. VENLIFT [Concomitant]
  6. RIVOTRIL [Concomitant]
  7. ARCALION [Concomitant]
  8. LEVOFLOXACIN [Concomitant]
  9. DIMETICONE [Concomitant]
  10. CLARITHROMYCIN [Concomitant]
  11. PANTOPRAZOLE [Concomitant]
     Route: 065
  12. TARGIFOR [Concomitant]
  13. ALPRAZOLAM [Concomitant]
     Route: 065
  14. TYLENOL [Concomitant]
     Indication: PREMEDICATION
  15. DRAMIN [Concomitant]
     Indication: PREMEDICATION
  16. RIVOTRIL [Concomitant]

REACTIONS (19)
  - Blood pressure increased [Unknown]
  - Headache [Recovered/Resolved]
  - Lung infection [Recovered/Resolved]
  - Nervousness [Not Recovered/Not Resolved]
  - Dyspnoea [Recovered/Resolved]
  - Chest pain [Recovered/Resolved]
  - Malaise [Recovered/Resolved]
  - Pain in extremity [Unknown]
  - Limb injury [Unknown]
  - Localised infection [Unknown]
  - Immunodeficiency [Not Recovered/Not Resolved]
  - Influenza [Not Recovered/Not Resolved]
  - Blood cholesterol increased [Recovered/Resolved]
  - Blood glucose decreased [Recovered/Resolved]
  - Nausea [Unknown]
  - Asthenia [Unknown]
  - Dizziness [Unknown]
  - Muscle spasms [Unknown]
  - Pruritus [Unknown]
